FAERS Safety Report 9336777 (Version 1)
Quarter: 2013Q2

REPORT INFORMATION
  Report Type: Spontaneous
  Country: AT (occurrence: AT)
  Receive Date: 20130607
  Receipt Date: 20130607
  Transmission Date: 20140414
  Serious: Yes (Death, Other)
  Sender: FDA-Public Use
  Company Number: AT-ASTELLAS-2013EU004849

PATIENT
  Age: 8 Year
  Sex: Male

DRUGS (3)
  1. TACROLIMUS SYSTEMIC [Suspect]
     Indication: LUNG TRANSPLANT
     Dosage: UNK
     Route: 065
  2. MYCOPHENOLATE MOFETIL [Concomitant]
     Indication: LUNG TRANSPLANT
     Dosage: UNK
     Route: 065
  3. PREDNISONE [Concomitant]
     Indication: LUNG TRANSPLANT
     Dosage: UNK
     Route: 065

REACTIONS (7)
  - Off label use [Unknown]
  - Respiratory failure [Fatal]
  - Cardiac failure [Fatal]
  - Bronchostenosis [Unknown]
  - Transplant rejection [Unknown]
  - Polyomavirus-associated nephropathy [Not Recovered/Not Resolved]
  - Renal cell carcinoma [Unknown]
